FAERS Safety Report 11887880 (Version 1)
Quarter: 2016Q1

REPORT INFORMATION
  Report Type: Spontaneous
  Country: AU (occurrence: AU)
  Receive Date: 20160105
  Receipt Date: 20160105
  Transmission Date: 20160526
  Serious: Yes (Hospitalization)
  Sender: FDA-Public Use
  Company Number: AU-ACCORD-036370

PATIENT
  Age: 59 Year
  Sex: Female

DRUGS (2)
  1. QUETIAPINE [Suspect]
     Active Substance: QUETIAPINE
     Indication: PSYCHOTIC DISORDER
     Dosage: QUETIAPINE XR 200 MG WAS STARTED AND DOSE WAS INCREASED TO 600 MG DAILY AND THEN WITHDRAWN
  2. SERTRALINE [Suspect]
     Active Substance: SERTRALINE HYDROCHLORIDE
     Indication: DEPRESSIVE SYMPTOM

REACTIONS (2)
  - Torticollis [Recovered/Resolved]
  - Catatonia [Recovered/Resolved]
